APPROVED DRUG PRODUCT: ORPHENADRINE CITRATE
Active Ingredient: ORPHENADRINE CITRATE
Strength: 100MG
Dosage Form/Route: TABLET, EXTENDED RELEASE;ORAL
Application: A091158 | Product #001 | TE Code: AB
Applicant: UNICHEM LABORATORIES LTD
Approved: Jul 27, 2012 | RLD: No | RS: No | Type: RX